FAERS Safety Report 8383840-6 (Version None)
Quarter: 2012Q2

REPORT INFORMATION
  Report Type: 
  Country: None (occurrence: None)
  Receive Date: 20120524
  Receipt Date: 20120404
  Transmission Date: 20120825
  Serious: Yes (Death)
  Sender: FDA-Public Use
  Company Number: US-ROCHE-1048126

PATIENT
  Sex: Female
  Weight: 55.842 kg

DRUGS (5)
  1. AVASTIN [Suspect]
     Indication: PRODUCT USED FOR UNKNOWN INDICATION
  2. GEMCITABINE [Concomitant]
     Dates: end: 20101227
  3. CARBOPLATIN [Concomitant]
     Route: 042
     Dates: start: 20100719, end: 20101115
  4. TAXOL [Concomitant]
     Route: 042
     Dates: start: 20110810, end: 20111205
  5. DOXIL [Concomitant]
     Route: 042
     Dates: start: 20110404, end: 20110727

REACTIONS (1)
  - NEOPLASM MALIGNANT [None]
